FAERS Safety Report 23022223 (Version 1)
Quarter: 2023Q4

REPORT INFORMATION
  Report Type: Spontaneous
  Country: US (occurrence: None)
  Receive Date: 20231003
  Receipt Date: 20231003
  Transmission Date: 20240109
  Serious: Yes (Other)
  Sender: FDA-Public Use
  Company Number: 2023A218359

PATIENT

DRUGS (1)
  1. FARXIGA [Suspect]
     Active Substance: DAPAGLIFLOZIN PROPANEDIOL
     Route: 048
     Dates: start: 20230727

REACTIONS (6)
  - Glomerular filtration rate decreased [Unknown]
  - Laboratory test abnormal [Unknown]
  - Blood disorder [Unknown]
  - Aortic aneurysm [Unknown]
  - Blood creatinine increased [Unknown]
  - Cardiac disorder [Unknown]
